FAERS Safety Report 17160461 (Version 1)
Quarter: 2019Q4

REPORT INFORMATION
  Report Type: Spontaneous
  Country: GB (occurrence: GB)
  Receive Date: 20191216
  Receipt Date: 20191216
  Transmission Date: 20200122
  Serious: Yes (Other)
  Sender: FDA-Public Use
  Company Number: GB-ELI_LILLY_AND_COMPANY-GB201912003177

PATIENT
  Age: 23 Year
  Sex: Female

DRUGS (4)
  1. FLUOXETINE [Suspect]
     Active Substance: FLUOXETINE HYDROCHLORIDE
     Indication: DEPRESSION
     Dosage: 10 MG, UNKNOWN
     Route: 065
  2. BUDESONIDE. [Suspect]
     Active Substance: BUDESONIDE
     Indication: ASTHMA
     Dosage: 2 DF, QD(1 DF, 2X/DAY (BID))
     Route: 065
     Dates: start: 200510
  3. SALBUTAMOL [Suspect]
     Active Substance: ALBUTEROL
     Indication: ASTHMA
     Dosage: UNK, UNKNOWN
     Route: 065
  4. FORMOTEROL [Suspect]
     Active Substance: FORMOTEROL
     Indication: ASTHMA
     Dosage: 2 DF, QD (1 DF, 2X/DAY (BID))
     Route: 065
     Dates: start: 200510

REACTIONS (1)
  - Maternal exposure during pregnancy [Unknown]
